FAERS Safety Report 11782999 (Version 1)
Quarter: 2015Q4

REPORT INFORMATION
  Report Type: Report from Study
  Country: CA (occurrence: CA)
  Receive Date: 20151127
  Receipt Date: 20151127
  Transmission Date: 20160305
  Serious: Yes (Other)
  Sender: FDA-Public Use
  Company Number: CA-JNJFOC-20151122037

PATIENT
  Age: 50 Year
  Sex: Male
  Weight: 78 kg

DRUGS (4)
  1. PREDNISONE. [Concomitant]
     Active Substance: PREDNISONE
     Route: 065
  2. REMICADE [Suspect]
     Active Substance: INFLIXIMAB
     Indication: CROHN^S DISEASE
     Route: 042
     Dates: start: 201012
  3. PERCOCET [Concomitant]
     Active Substance: ACETAMINOPHEN\OXYCODONE HYDROCHLORIDE
     Route: 048
     Dates: start: 201410
  4. MS CONTIN [Concomitant]
     Active Substance: MORPHINE SULFATE
     Indication: PAIN MANAGEMENT
     Dosage: AS NECESSARY
     Route: 048
     Dates: start: 1998

REACTIONS (4)
  - Intestinal stenosis [Not Recovered/Not Resolved]
  - Squamous cell carcinoma [Unknown]
  - Intestinal obstruction [Not Recovered/Not Resolved]
  - Parathyroid tumour benign [Unknown]

NARRATIVE: CASE EVENT DATE: 201311
